FAERS Safety Report 10177956 (Version 1)
Quarter: 2014Q2

REPORT INFORMATION
  Report Type: Spontaneous
  Country: AU (occurrence: AU)
  Receive Date: 20140516
  Receipt Date: 20140516
  Transmission Date: 20141212
  Serious: Yes (Disabling)
  Sender: FDA-Public Use
  Company Number: AU-009507513-1405AUS007528

PATIENT
  Age: 47 Year
  Sex: Male
  Weight: 85 kg

DRUGS (1)
  1. ROCURONIUM BROMIDE [Suspect]
     Dosage: 0.1 G, ONCE
     Route: 042
     Dates: start: 20140130, end: 20140130

REACTIONS (1)
  - Cardiac arrest [Recovering/Resolving]
